FAERS Safety Report 25627731 (Version 2)
Quarter: 2025Q4

REPORT INFORMATION
  Report Type: Report from Study
  Country: US (occurrence: US)
  Receive Date: 20250731
  Receipt Date: 20251006
  Transmission Date: 20260117
  Serious: Yes (Other)
  Sender: NOVARTIS
  Company Number: US-002147023-NVSC2025US085705

PATIENT
  Age: 6 Year
  Sex: Female

DRUGS (2)
  1. ILARIS [Suspect]
     Active Substance: CANAKINUMAB
     Indication: Pyrexia
     Dosage: 75 MG, Q4W
     Route: 058
     Dates: start: 20240318
  2. ILARIS [Suspect]
     Active Substance: CANAKINUMAB
     Dosage: 86 MG, Q4W
     Route: 058

REACTIONS (3)
  - Pneumonia [Unknown]
  - Pyrexia [Unknown]
  - Incorrect dose administered [Unknown]

NARRATIVE: CASE EVENT DATE: 20250725
